FAERS Safety Report 4736197-3 (Version None)
Quarter: 2005Q3

REPORT INFORMATION
  Report Type: 
  Country: None (occurrence: None)
  Receive Date: 20050806
  Receipt Date: 20050712
  Transmission Date: 20060218
  Serious: Yes (Other)
  Sender: FDA-Public Use
  Company Number: PHBS2005JP10012

PATIENT
  Sex: Female

DRUGS (5)
  1. DIOVAN [Suspect]
     Indication: HYPERTENSION
     Dosage: 160 MG/DAY
     Route: 048
     Dates: start: 20050101
  2. ADALAT [Concomitant]
     Dosage: 40 MG/DAY
     Route: 048
  3. NITOROL [Concomitant]
     Dosage: 60 MG/DAY
     Route: 048
  4. ARTIST [Concomitant]
     Dosage: 10 MG/DAY
     Route: 048
  5. GASTER D [Concomitant]
     Dosage: 20 MG/DAY
     Route: 048

REACTIONS (3)
  - MALAISE [None]
  - NEPHRITIS [None]
  - URINE OUTPUT DECREASED [None]
